FAERS Safety Report 8320043 (Version 5)
Quarter: 2012Q4

REPORT INFORMATION
  Report Type: 
  Country: US (occurrence: US)
  Receive Date: 20120103
  Receipt Date: 20120927
  Transmission Date: 20130627
  Serious: Yes (Death, Hospitalization, Other)
  Sender: FDA-Public Use
  Company Number: US-ELI_LILLY_AND_COMPANY-US201201000170

PATIENT
  Age: 79 Year
  Sex: Female
  Weight: 54.42 kg

DRUGS (18)
  1. FORTEO [Suspect]
     Indication: OSTEOPOROSIS
     Dosage: 20 ug, qd
     Route: 065
     Dates: start: 2011
  2. FORTEO [Suspect]
     Dosage: 20 ug, qd
     Route: 065
  3. FORTEO [Suspect]
     Dosage: 20 ug, qd
  4. OXYGEN [Concomitant]
     Dosage: UNK, other
  5. ALBUTEROL [Concomitant]
  6. DILTIAZEM [Concomitant]
  7. NEURONTIN [Concomitant]
  8. ZOFRAN [Concomitant]
  9. MUCINEX [Concomitant]
  10. ZANTAC [Concomitant]
  11. SPIRIVA [Concomitant]
  12. SINEQUAN [Concomitant]
  13. CATAFLAM [Concomitant]
  14. LORTAB [Concomitant]
  15. REGLAN [Concomitant]
  16. UNIVASC [Concomitant]
  17. PREDNISONE [Concomitant]
  18. IPRATROPIUM [Concomitant]

REACTIONS (15)
  - Respiratory failure [Fatal]
  - Hip fracture [Unknown]
  - Joint fluid drainage [Unknown]
  - Pneumonia [Not Recovered/Not Resolved]
  - General physical health deterioration [Unknown]
  - Bursitis [Not Recovered/Not Resolved]
  - Arthritis [Not Recovered/Not Resolved]
  - Confusional state [Not Recovered/Not Resolved]
  - Spinal fracture [Unknown]
  - Gait disturbance [Unknown]
  - Bone disorder [Unknown]
  - Postoperative wound infection [Unknown]
  - Gastrooesophageal reflux disease [Unknown]
  - Decreased appetite [Unknown]
  - Depression [Unknown]
